FAERS Safety Report 5138049-6 (Version None)
Quarter: 2006Q4

REPORT INFORMATION
  Report Type: 
  Country: None (occurrence: None)
  Receive Date: 20061030
  Receipt Date: 20060403
  Transmission Date: 20070319
  Serious: No
  Sender: FDA-Public Use
  Company Number: 2006SP000224

PATIENT
  Sex: Female

DRUGS (3)
  1. ADVAIR HFA [Suspect]
     Indication: ASTHMA
     Route: 055
     Dates: end: 20051214
  2. XOPENEX [Concomitant]
     Indication: ASTHMA
     Dosage: 2PUFF SIX TIMES PER DAY
     Route: 055
     Dates: start: 20051215
  3. UNKNOWN MEDICATION [Concomitant]

REACTIONS (2)
  - DYSPHONIA [None]
  - NASOPHARYNGEAL DISORDER [None]
